FAERS Safety Report 11092818 (Version 1)
Quarter: 2015Q2

REPORT INFORMATION
  Report Type: Report from Study
  Country: IT (occurrence: IT)
  Receive Date: 20150506
  Receipt Date: 20150506
  Transmission Date: 20150821
  Serious: Yes (Death, Hospitalization)
  Sender: FDA-Public Use
  Company Number: IT-TEVA-558597ACC

PATIENT
  Sex: Female

DRUGS (22)
  1. DOXORUBICIN HYDROCHLORIDE. [Suspect]
     Active Substance: DOXORUBICIN HYDROCHLORIDE
     Indication: PLASMA CELL MYELOMA
     Dosage: (LINE 4 CYCLE 1)
     Route: 042
     Dates: start: 20130705, end: 20130920
  2. VELCADE [Suspect]
     Active Substance: BORTEZOMIB
     Dates: start: 20120820, end: 20120830
  3. BENDAMUSTINE HYDROCHLORIDE [Suspect]
     Active Substance: BENDAMUSTINE HYDROCHLORIDE
     Indication: PLASMA CELL MYELOMA
     Dosage: CYCLICAL, (LINE 2 ONCE DAILY) FOR CYCLE 1
     Dates: start: 20130108, end: 20130109
  4. DESAMETHASONE [Suspect]
     Active Substance: DEXAMETHASONE
     Dosage: (LINE 1, CYCLE 3)
     Dates: start: 20120709, end: 20120729
  5. DESAMETHASONE [Suspect]
     Active Substance: DEXAMETHASONE
     Dosage: (LINE 1)
     Dates: start: 20120802, end: 20120819
  6. VELCADE [Suspect]
     Active Substance: BORTEZOMIB
     Dates: start: 20120910, end: 20120929
  7. DESAMETHASONE [Suspect]
     Active Substance: DEXAMETHASONE
     Dosage: (LINE 1, CYCLE 7)
     Dates: start: 20130108, end: 20130109
  8. VELCADE [Suspect]
     Active Substance: BORTEZOMIB
     Indication: PLASMA CELL MYELOMA
     Dosage: 1.3 MG/M2 CYCLICAL; LYOPHILIZED POWDER
     Dates: start: 20120502, end: 20120522
  9. VELCADE [Suspect]
     Active Substance: BORTEZOMIB
     Dates: start: 20120802, end: 20120819
  10. VELCADE [Suspect]
     Active Substance: BORTEZOMIB
     Dates: start: 20120618, end: 20120706
  11. VELCADE [Suspect]
     Active Substance: BORTEZOMIB
     Dates: start: 20121220, end: 20121231
  12. DESAMETHASONE [Suspect]
     Active Substance: DEXAMETHASONE
     Indication: PLASMA CELL MYELOMA
     Dosage: (LINE 1 CYCLE 1)
     Dates: start: 20120502, end: 20120522
  13. DESAMETHASONE [Suspect]
     Active Substance: DEXAMETHASONE
     Dosage: (LINE 4, CYCLE 1)
     Dates: start: 20130705, end: 20130920
  14. DESAMETHASONE [Suspect]
     Active Substance: DEXAMETHASONE
     Dosage: (LINE 5, CYCLE 1)
     Dates: start: 20130927, end: 20131011
  15. VELCADE [Suspect]
     Active Substance: BORTEZOMIB
     Dates: start: 20130927, end: 20131011
  16. DESAMETHASONE [Suspect]
     Active Substance: DEXAMETHASONE
     Dosage: (LINE 1, CYCLE 2)
     Dates: start: 20120618, end: 20120706
  17. DESAMETHASONE [Suspect]
     Active Substance: DEXAMETHASONE
     Dosage: (LINE 1, CYCLE 4)
     Dates: start: 20120820, end: 20120830
  18. VELCADE [Suspect]
     Active Substance: BORTEZOMIB
     Dates: start: 20130705, end: 20130920
  19. DESAMETHASONE [Suspect]
     Active Substance: DEXAMETHASONE
     Dosage: (LINE 1, CYCLE 6)
     Dates: start: 20121220, end: 20121231
  20. VELCADE [Suspect]
     Active Substance: BORTEZOMIB
     Dates: start: 20120709, end: 20120729
  21. BENDAMUSTINE HYDROCHLORIDE [Suspect]
     Active Substance: BENDAMUSTINE HYDROCHLORIDE
     Dosage: CYCLICAL, (LINE 5 CYCLIC) FOR CYCLE 1
     Dates: start: 20130923, end: 20131011
  22. DESAMETHASONE [Suspect]
     Active Substance: DEXAMETHASONE
     Dosage: (LINE 1, CYCLE 5)
     Dates: start: 20120910, end: 20120929

REACTIONS (4)
  - Pathological fracture [Fatal]
  - Multi-organ failure [Unknown]
  - Dyspnoea [Unknown]
  - Pulmonary embolism [Unknown]
